FAERS Safety Report 9102956 (Version 2)
Quarter: 2014Q1

REPORT INFORMATION
  Report Type: Spontaneous
  Country: CM (occurrence: CM)
  Receive Date: 20130219
  Receipt Date: 20140315
  Transmission Date: 20141002
  Serious: Yes (Hospitalization, Disabling)
  Sender: FDA-Public Use
  Company Number: CM-MERCK-1302CMR006609

PATIENT
  Age: 58 Year
  Sex: Female
  Weight: 57 kg

DRUGS (4)
  1. MECTIZAN [Suspect]
     Indication: FILARIASIS LYMPHATIC
     Dosage: 3 TABLETS, ONCE
     Route: 048
     Dates: start: 20120821, end: 20120821
  2. MECTIZAN [Suspect]
     Dosage: 3 TABLETS, ONCE
     Route: 048
     Dates: start: 2010, end: 2010
  3. ALBENDAZOLE [Suspect]
     Indication: FILARIASIS LYMPHATIC
     Dosage: 1 TABLET, ONCE
     Route: 048
     Dates: start: 20120821, end: 20120821
  4. ALBENDAZOLE [Suspect]
     Indication: ONCHOCERCIASIS

REACTIONS (6)
  - Dermatitis bullous [Not Recovered/Not Resolved]
  - Ecchymosis [Not Recovered/Not Resolved]
  - Petechiae [Not Recovered/Not Resolved]
  - Oedema peripheral [Not Recovered/Not Resolved]
  - Pyrexia [Not Recovered/Not Resolved]
  - Generalised oedema [Not Recovered/Not Resolved]
